FAERS Safety Report 10099060 (Version 1)
Quarter: 2014Q2

REPORT INFORMATION
  Report Type: Spontaneous
  Country: US (occurrence: None)
  Receive Date: 20140422
  Receipt Date: 20140422
  Transmission Date: 20141212
  Serious: No
  Sender: FDA-Public Use
  Company Number: None

PATIENT
  Age: 36 Year
  Sex: Female
  Weight: 61.24 kg

DRUGS (2)
  1. BUPROPION XL [Suspect]
     Indication: DEPRESSION
     Dosage: 1 TAB
     Route: 048
     Dates: start: 20090328, end: 20140417
  2. BUPROPION XL [Suspect]
     Indication: ANXIETY
     Dosage: 1 TAB
     Route: 048
     Dates: start: 20090328, end: 20140417

REACTIONS (8)
  - Asthenia [None]
  - Feeling abnormal [None]
  - Anger [None]
  - Irritability [None]
  - Depression [None]
  - Marital problem [None]
  - Feeling abnormal [None]
  - Product substitution issue [None]
